FAERS Safety Report 9363052 (Version 1)
Quarter: 2013Q2

REPORT INFORMATION
  Report Type: Spontaneous
  Country: US (occurrence: US)
  Receive Date: 20130624
  Receipt Date: 20130624
  Transmission Date: 20140414
  Serious: No
  Sender: FDA-Public Use
  Company Number: US-PFIZER INC-2013185362

PATIENT
  Age: 74 Year
  Sex: 0

DRUGS (8)
  1. PROTONIX [Suspect]
     Dosage: UNK
  2. GLYBURIDE [Suspect]
     Dosage: UNK
  3. ATENOL [Suspect]
     Dosage: UNK
  4. CRESTOR [Suspect]
     Dosage: UNK
  5. HYTRIN [Suspect]
     Dosage: UNK
  6. PLAVIX [Suspect]
     Dosage: UNK
  7. METFORMIN [Concomitant]
     Dosage: UNK
  8. LISINOPRIL [Concomitant]
     Dosage: UNK

REACTIONS (1)
  - Drug hypersensitivity [Unknown]
